FAERS Safety Report 6921486-4 (Version None)
Quarter: 2010Q3

REPORT INFORMATION
  Report Type: 
  Country: None (occurrence: None)
  Receive Date: 20100812
  Receipt Date: 20100701
  Transmission Date: 20110219
  Serious: Yes (Hospitalization, Other)
  Sender: FDA-Public Use
  Company Number: US-BAXTER-2008BH001899

PATIENT
  Age: 20 Year
  Sex: Male
  Weight: 68 kg

DRUGS (11)
  1. HEPARIN SODIUM INJECTION [Suspect]
     Indication: THROMBOSIS PROPHYLAXIS
     Route: 058
     Dates: start: 20050101, end: 20080301
  2. HEPARIN SODIUM INJECTION [Suspect]
     Route: 058
     Dates: start: 20080223, end: 20080226
  3. HEPARIN SODIUM INJECTION [Suspect]
     Route: 058
     Dates: start: 20080314, end: 20080301
  4. REGLAN [Concomitant]
     Indication: PRODUCT USED FOR UNKNOWN INDICATION
     Route: 065
  5. PREVACID [Concomitant]
     Indication: PRODUCT USED FOR UNKNOWN INDICATION
     Route: 065
  6. CENTRUM [Concomitant]
     Indication: PRODUCT USED FOR UNKNOWN INDICATION
     Route: 065
  7. MIRALAX [Concomitant]
     Indication: ABNORMAL FAECES
     Route: 065
  8. COLACE [Concomitant]
     Indication: PRODUCT USED FOR UNKNOWN INDICATION
     Route: 065
  9. ATIVAN [Concomitant]
     Indication: PRODUCT USED FOR UNKNOWN INDICATION
     Route: 065
  10. ACETAMINOPHEN [Concomitant]
     Indication: PRODUCT USED FOR UNKNOWN INDICATION
     Route: 065
  11. BENEFIBER [Concomitant]
     Indication: PRODUCT USED FOR UNKNOWN INDICATION
     Route: 065

REACTIONS (14)
  - BLOOD PRESSURE FLUCTUATION [None]
  - CARDIAC FAILURE CONGESTIVE [None]
  - CHEST DISCOMFORT [None]
  - CHEST PAIN [None]
  - CHOKING SENSATION [None]
  - COAGULOPATHY [None]
  - HYPOTENSION [None]
  - NAUSEA [None]
  - OEDEMA PERIPHERAL [None]
  - PHARYNGITIS [None]
  - PLATELET COUNT DECREASED [None]
  - RENAL FAILURE ACUTE [None]
  - RESPIRATORY FAILURE [None]
  - TACHYCARDIA [None]
